FAERS Safety Report 25532504 (Version 2)
Quarter: 2025Q3

REPORT INFORMATION
  Report Type: Spontaneous
  Country: TW (occurrence: TW)
  Receive Date: 20250709
  Receipt Date: 20250819
  Transmission Date: 20251020
  Serious: Yes (Other)
  Sender: BOEHRINGER INGELHEIM
  Company Number: TW-BoehringerIngelheim-2025-BI-081160

PATIENT
  Age: 72 Year
  Sex: Female

DRUGS (5)
  1. LINAGLIPTIN\METFORMIN HYDROCHLORIDE [Suspect]
     Active Substance: LINAGLIPTIN\METFORMIN HYDROCHLORIDE
     Indication: Type 2 diabetes mellitus
     Dosage: 2.5/850MG
     Dates: start: 20241023, end: 20250630
  2. CADUET [Suspect]
     Active Substance: AMLODIPINE BESYLATE\ATORVASTATIN CALCIUM
     Indication: Hypertension
     Dates: start: 20250507, end: 20250604
  3. ULSTAL TABLETS [Concomitant]
     Indication: Abdominal pain upper
     Dates: start: 20241023, end: 20250704
  4. METHIMAZOLE LICA TABLETS [Concomitant]
     Indication: Hyperthyroidism
     Dates: start: 20241023, end: 20250704
  5. NORVASC [Concomitant]
     Active Substance: AMLODIPINE BESYLATE
     Indication: Hypertension
     Dates: start: 20250604, end: 20250704

REACTIONS (3)
  - Blister [Recovering/Resolving]
  - Pemphigoid [Recovering/Resolving]
  - Hypoaesthesia [Recovered/Resolved]

NARRATIVE: CASE EVENT DATE: 20250201
